FAERS Safety Report 6928661-3 (Version None)
Quarter: 2010Q3

REPORT INFORMATION
  Report Type: 
  Country: None (occurrence: None)
  Receive Date: 20100817
  Receipt Date: 20100806
  Transmission Date: 20110219
  Serious: Yes (Hospitalization)
  Sender: FDA-Public Use
  Company Number: A0851904A

PATIENT
  Age: 57 Year
  Sex: Male
  Weight: 95 kg

DRUGS (10)
  1. AVANDIA [Suspect]
     Indication: DIABETES MELLITUS
     Dosage: 8MG TWICE PER DAY
     Route: 048
     Dates: start: 19990101, end: 20070101
  2. VENLAFAXINE [Concomitant]
  3. SIMVASTATIN [Concomitant]
  4. HYDROCHLOROTHIAZIDE [Concomitant]
  5. GLYBURIDE [Concomitant]
  6. FOSINOPRIL SODIUM [Concomitant]
  7. CLONAZEPAM [Concomitant]
  8. BENZTROPINE MESYLATE [Concomitant]
  9. ALBUTEROL [Concomitant]
  10. ARIPIPRAZOLE [Concomitant]

REACTIONS (4)
  - BRAIN SCAN ABNORMAL [None]
  - CHEST PAIN [None]
  - CONVULSION [None]
  - INTRACARDIAC THROMBUS [None]
